FAERS Safety Report 10477385 (Version 1)
Quarter: 2014Q3

REPORT INFORMATION
  Report Type: Spontaneous
  Country: TW (occurrence: TW)
  Receive Date: 20140926
  Receipt Date: 20140926
  Transmission Date: 20150326
  Serious: Yes (Hospitalization, Other)
  Sender: FDA-Public Use
  Company Number: TW-JNJFOC-20140911388

PATIENT
  Age: 27 Year
  Sex: Female
  Weight: 57 kg

DRUGS (61)
  1. INVEGA SUSTENNA [Suspect]
     Active Substance: PALIPERIDONE PALMITATE
     Indication: SCHIZOPHRENIA
     Route: 030
     Dates: start: 20140114
  2. INVEGA SUSTENNA [Suspect]
     Active Substance: PALIPERIDONE PALMITATE
     Indication: SCHIZOPHRENIA
     Route: 030
     Dates: start: 20140311
  3. INVEGA SUSTENNA [Suspect]
     Active Substance: PALIPERIDONE PALMITATE
     Indication: SCHIZOPHRENIA
     Route: 030
     Dates: start: 20140212
  4. RIVOTRIL [Concomitant]
     Active Substance: CLONAZEPAM
     Indication: EXTRAPYRAMIDAL DISORDER
     Route: 048
     Dates: start: 20140901, end: 20140901
  5. EURODIN [Concomitant]
     Active Substance: ESTAZOLAM
     Indication: PRODUCT USED FOR UNKNOWN INDICATION
     Dosage: 1 TABLET AS ORDER
     Route: 048
     Dates: start: 20140701
  6. MESYREL [Concomitant]
     Indication: PRODUCT USED FOR UNKNOWN INDICATION
     Dosage: 1 TABLET AS ORDER
     Route: 048
     Dates: start: 20140408
  7. MESYREL [Concomitant]
     Indication: PRODUCT USED FOR UNKNOWN INDICATION
     Dosage: 1 TABLET AS ORDER
     Route: 048
     Dates: start: 20140311
  8. INVEGA SUSTENNA [Suspect]
     Active Substance: PALIPERIDONE PALMITATE
     Indication: SCHIZOPHRENIA
     Route: 030
     Dates: start: 20140603
  9. INVEGA SUSTENNA [Suspect]
     Active Substance: PALIPERIDONE PALMITATE
     Indication: SCHIZOPHRENIA
     Route: 030
     Dates: start: 20140506
  10. RIVOTRIL [Concomitant]
     Active Substance: CLONAZEPAM
     Indication: EXTRAPYRAMIDAL DISORDER
     Route: 048
     Dates: start: 20140729
  11. RIVOTRIL [Concomitant]
     Active Substance: CLONAZEPAM
     Indication: EXTRAPYRAMIDAL DISORDER
     Route: 048
     Dates: start: 20140812
  12. RIVOTRIL [Concomitant]
     Active Substance: CLONAZEPAM
     Indication: EXTRAPYRAMIDAL DISORDER
     Route: 048
     Dates: start: 20140826
  13. PK-MERZ [Concomitant]
     Active Substance: AMANTADINE
     Indication: EXTRAPYRAMIDAL DISORDER
     Route: 048
     Dates: start: 20140729
  14. EURODIN [Concomitant]
     Active Substance: ESTAZOLAM
     Indication: PRODUCT USED FOR UNKNOWN INDICATION
     Dosage: 1 TABLET AS ORDER
     Route: 048
     Dates: start: 20140114
  15. EURODIN [Concomitant]
     Active Substance: ESTAZOLAM
     Indication: PRODUCT USED FOR UNKNOWN INDICATION
     Dosage: 1 TABLET AS ORDER
     Route: 048
     Dates: start: 20140408
  16. EURODIN [Concomitant]
     Active Substance: ESTAZOLAM
     Indication: PRODUCT USED FOR UNKNOWN INDICATION
     Dosage: 1 TABLET AS ORDER
     Route: 048
     Dates: start: 20140506
  17. BIPIDEN [Concomitant]
     Indication: PRODUCT USED FOR UNKNOWN INDICATION
     Dosage: 3 TABLETS AS ORDER
     Route: 048
     Dates: start: 20140408
  18. RIVOTRIL [Concomitant]
     Active Substance: CLONAZEPAM
     Indication: EXTRAPYRAMIDAL DISORDER
     Route: 048
     Dates: start: 20140826
  19. PK-MERZ [Concomitant]
     Active Substance: AMANTADINE
     Indication: EXTRAPYRAMIDAL DISORDER
     Route: 048
     Dates: start: 20140901, end: 20140909
  20. EURODIN [Concomitant]
     Active Substance: ESTAZOLAM
     Indication: PRODUCT USED FOR UNKNOWN INDICATION
     Dosage: 1 TABLET AS ORDER
     Route: 048
     Dates: start: 20140701
  21. MESYREL [Concomitant]
     Indication: PRODUCT USED FOR UNKNOWN INDICATION
     Dosage: 1 TABLET AS ORDER
     Route: 048
     Dates: start: 20140701
  22. MESYREL [Concomitant]
     Indication: PRODUCT USED FOR UNKNOWN INDICATION
     Dosage: 1 TABLET AS ORDER
     Route: 048
     Dates: start: 20140506
  23. MESYREL [Concomitant]
     Indication: PRODUCT USED FOR UNKNOWN INDICATION
     Dosage: 1 TABLET AS ORDER
     Route: 048
     Dates: start: 20140212
  24. RIVOTRIL [Concomitant]
     Active Substance: CLONAZEPAM
     Indication: EXTRAPYRAMIDAL DISORDER
     Route: 048
     Dates: start: 20140901, end: 20140909
  25. PK-MERZ [Concomitant]
     Active Substance: AMANTADINE
     Indication: EXTRAPYRAMIDAL DISORDER
     Route: 048
     Dates: start: 20140826
  26. PK-MERZ [Concomitant]
     Active Substance: AMANTADINE
     Indication: EXTRAPYRAMIDAL DISORDER
     Route: 048
     Dates: start: 20140901, end: 20140901
  27. ZYPREXA [Concomitant]
     Active Substance: OLANZAPINE
     Indication: SCHIZOPHRENIA
     Dosage: QDPC (SIC) AND HOUR OF SLEEP
     Route: 048
     Dates: start: 20140904, end: 20140909
  28. ZYPREXA [Concomitant]
     Active Substance: OLANZAPINE
     Indication: SCHIZOPHRENIA
     Dosage: QDPC (SIC) AND HOUR OF SLEEP
     Route: 048
     Dates: start: 20140909, end: 20140910
  29. ATROPINE SULFATE. [Concomitant]
     Active Substance: ATROPINE SULFATE
     Indication: SALIVARY HYPERSECRETION
     Dosage: PRN (PRO RE NATA): AS NEEDED
     Route: 065
     Dates: start: 20140909, end: 20140910
  30. EURODIN [Concomitant]
     Active Substance: ESTAZOLAM
     Indication: PRODUCT USED FOR UNKNOWN INDICATION
     Dosage: 1 TABLET AS ORDER
     Route: 048
     Dates: start: 20140603
  31. EURODIN [Concomitant]
     Active Substance: ESTAZOLAM
     Indication: PRODUCT USED FOR UNKNOWN INDICATION
     Dosage: 1 TABLET AS ORDER
     Route: 048
     Dates: start: 20140901, end: 20140902
  32. MESYREL [Concomitant]
     Indication: PRODUCT USED FOR UNKNOWN INDICATION
     Dosage: 1 TABLET AS ORDER
     Route: 048
     Dates: start: 20130927
  33. INVEGA SUSTENNA [Suspect]
     Active Substance: PALIPERIDONE PALMITATE
     Indication: SCHIZOPHRENIA
     Route: 030
     Dates: start: 20130731, end: 20130807
  34. MESYREL [Concomitant]
     Indication: PRODUCT USED FOR UNKNOWN INDICATION
     Dosage: 1 TABLET AS ORDER
     Route: 048
     Dates: start: 20130906
  35. MESYREL [Concomitant]
     Indication: PRODUCT USED FOR UNKNOWN INDICATION
     Dosage: 1 TABLET AS ORDER
     Route: 048
     Dates: start: 20131119
  36. INVEGA SUSTENNA [Suspect]
     Active Substance: PALIPERIDONE PALMITATE
     Indication: SCHIZOPHRENIA
     Route: 030
     Dates: start: 20140805, end: 20140805
  37. RIVOTRIL [Concomitant]
     Active Substance: CLONAZEPAM
     Indication: EXTRAPYRAMIDAL DISORDER
     Route: 048
     Dates: start: 20140729
  38. BEFON [Concomitant]
     Indication: EXTRAPYRAMIDAL DISORDER
     Route: 048
     Dates: start: 20140826
  39. BEFON [Concomitant]
     Indication: EXTRAPYRAMIDAL DISORDER
     Route: 048
     Dates: start: 20140812
  40. BEFON [Concomitant]
     Indication: EXTRAPYRAMIDAL DISORDER
     Route: 048
     Dates: start: 20140901, end: 20140909
  41. EURODIN [Concomitant]
     Active Substance: ESTAZOLAM
     Indication: PRODUCT USED FOR UNKNOWN INDICATION
     Dosage: 1 TABLET AS ORDER
     Route: 048
     Dates: start: 20140311
  42. EURODIN [Concomitant]
     Active Substance: ESTAZOLAM
     Indication: PRODUCT USED FOR UNKNOWN INDICATION
     Dosage: 1 TABLET AS ORDER
     Route: 048
     Dates: start: 20140902, end: 20140903
  43. MESYREL [Concomitant]
     Indication: PRODUCT USED FOR UNKNOWN INDICATION
     Dosage: 1 TABLET AS ORDER
     Route: 048
     Dates: start: 20140805
  44. INVEGA SUSTENNA [Suspect]
     Active Substance: PALIPERIDONE PALMITATE
     Indication: SCHIZOPHRENIA
     Route: 030
     Dates: start: 20140701
  45. PK-MERZ [Concomitant]
     Active Substance: AMANTADINE
     Indication: EXTRAPYRAMIDAL DISORDER
     Route: 048
     Dates: start: 20140812
  46. ATROPINE SULFATE. [Concomitant]
     Active Substance: ATROPINE SULFATE
     Indication: SALIVARY HYPERSECRETION
     Route: 065
     Dates: start: 20140909, end: 20140909
  47. EURODIN [Concomitant]
     Active Substance: ESTAZOLAM
     Indication: PRODUCT USED FOR UNKNOWN INDICATION
     Dosage: 1 TABLET AS ORDER
     Route: 048
     Dates: start: 20140212
  48. EURODIN [Concomitant]
     Active Substance: ESTAZOLAM
     Indication: PRODUCT USED FOR UNKNOWN INDICATION
     Dosage: 1 TABLET AS ORDER
     Route: 048
     Dates: start: 20140805
  49. MESYREL [Concomitant]
     Indication: PRODUCT USED FOR UNKNOWN INDICATION
     Dosage: 1 TABLET AS ORDER
     Route: 048
     Dates: start: 20140906
  50. MESYREL [Concomitant]
     Indication: PRODUCT USED FOR UNKNOWN INDICATION
     Dosage: 1 TABLET AS ORDER
     Route: 048
     Dates: start: 20140603
  51. MESYREL [Concomitant]
     Indication: PRODUCT USED FOR UNKNOWN INDICATION
     Dosage: 1 TABLET AS ORDER
     Route: 048
     Dates: start: 20131025
  52. MESYREL [Concomitant]
     Indication: PRODUCT USED FOR UNKNOWN INDICATION
     Dosage: 1 TABLET AS ORDER
     Route: 048
     Dates: start: 20140901, end: 20140902
  53. BIPIDEN [Concomitant]
     Indication: PRODUCT USED FOR UNKNOWN INDICATION
     Dosage: 3 TABLETS AS ORDER
     Route: 048
     Dates: start: 20140603
  54. INVEGA SUSTENNA [Suspect]
     Active Substance: PALIPERIDONE PALMITATE
     Indication: SCHIZOPHRENIA
     Route: 030
     Dates: start: 20140408
  55. BEFON [Concomitant]
     Indication: EXTRAPYRAMIDAL DISORDER
     Route: 048
     Dates: start: 20140901, end: 20140901
  56. EURODIN [Concomitant]
     Active Substance: ESTAZOLAM
     Indication: PRODUCT USED FOR UNKNOWN INDICATION
     Dosage: 1 TABLET AS ORDER
     Route: 048
     Dates: start: 20140902, end: 20140903
  57. MESYREL [Concomitant]
     Indication: PRODUCT USED FOR UNKNOWN INDICATION
     Dosage: 1 TABLET AS ORDER
     Route: 048
     Dates: start: 20140114
  58. MESYREL [Concomitant]
     Indication: PRODUCT USED FOR UNKNOWN INDICATION
     Dosage: 1 TABLET AS ORDER
     Route: 048
     Dates: start: 20131217
  59. BIPIDEN [Concomitant]
     Indication: PRODUCT USED FOR UNKNOWN INDICATION
     Dosage: 3 TABLETS AS ORDER
     Route: 048
     Dates: start: 20140805
  60. BIPIDEN [Concomitant]
     Indication: PRODUCT USED FOR UNKNOWN INDICATION
     Dosage: 3 TABLETS AS ORDER
     Route: 048
     Dates: start: 20140701
  61. BIPIDEN [Concomitant]
     Indication: PRODUCT USED FOR UNKNOWN INDICATION
     Dosage: 3 TABLETS AS ORDER
     Route: 048
     Dates: start: 20140506

REACTIONS (11)
  - Toothache [Recovering/Resolving]
  - Obsessive-compulsive disorder [Unknown]
  - Fatigue [Unknown]
  - Localised infection [Unknown]
  - Akathisia [Not Recovered/Not Resolved]
  - Weight decreased [Unknown]
  - Dystonia [Not Recovered/Not Resolved]
  - Dystonia [Not Recovered/Not Resolved]
  - Dysphagia [Unknown]
  - Inappropriate schedule of drug administration [Unknown]
  - Adverse event [Unknown]

NARRATIVE: CASE EVENT DATE: 201404
